FAERS Safety Report 5021804-0 (Version None)
Quarter: 2006Q2

REPORT INFORMATION
  Report Type: 
  Country: None (occurrence: None)
  Receive Date: 20060605
  Receipt Date: 20060530
  Transmission Date: 20061013
  Serious: Yes (Other)
  Sender: FDA-Public Use
  Company Number: 2006-04-2258

PATIENT
  Age: 70 Year
  Sex: Female
  Weight: 58.9676 kg

DRUGS (1)
  1. NASONEX [Suspect]
     Dosage: 2 SPR/NAR QD NASAL SPRAY
     Route: 045
     Dates: start: 20050101, end: 20060424

REACTIONS (2)
  - CATARACT [None]
  - CONDITION AGGRAVATED [None]
